FAERS Safety Report 25719180 (Version 1)
Quarter: 2025Q3

REPORT INFORMATION
  Report Type: Spontaneous
  Country: US (occurrence: US)
  Receive Date: 20250823
  Receipt Date: 20250823
  Transmission Date: 20251021
  Serious: No
  Sender: AMGEN
  Company Number: US-AMGEN-USASP2025166125

PATIENT

DRUGS (2)
  1. ERENUMAB [Suspect]
     Active Substance: ERENUMAB
     Indication: Product used for unknown indication
     Route: 065
  2. FREMANEZUMAB [Concomitant]
     Active Substance: FREMANEZUMAB

REACTIONS (3)
  - Constipation [Unknown]
  - Nausea [Unknown]
  - Gastrooesophageal reflux disease [Unknown]
